FAERS Safety Report 25993834 (Version 1)
Quarter: 2025Q4

REPORT INFORMATION
  Report Type: Spontaneous
  Country: US (occurrence: US)
  Receive Date: 20251104
  Receipt Date: 20251104
  Transmission Date: 20260118
  Serious: No
  Sender: TEVA
  Company Number: US-TEVA-VS-3386813

PATIENT
  Age: 59 Year
  Sex: Female

DRUGS (1)
  1. AJOVY [Suspect]
     Active Substance: FREMANEZUMAB-VFRM
     Indication: Product used for unknown indication
     Dosage: USING SINCE A YEAR. AJOVY (AUTOINJECTOR) 225 MG / 1.5 ML
     Route: 065

REACTIONS (4)
  - Injection site rash [Unknown]
  - Needle issue [Unknown]
  - Device delivery system issue [Unknown]
  - Device audio issue [Unknown]

NARRATIVE: CASE EVENT DATE: 20250101
